FAERS Safety Report 9378211 (Version 1)
Quarter: 2013Q3

REPORT INFORMATION
  Report Type: Spontaneous
  Country: DE (occurrence: DE)
  Receive Date: 20130701
  Receipt Date: 20130701
  Transmission Date: 20140515
  Serious: Yes (Hospitalization)
  Sender: FDA-Public Use
  Company Number: DE-GLAXOSMITHKLINE-D0080326A

PATIENT
  Sex: Female

DRUGS (1)
  1. SERETIDE [Suspect]
     Indication: ASTHMA
     Dosage: 300MCG TWICE PER DAY
     Route: 055
     Dates: start: 2007

REACTIONS (12)
  - Hypertension [Unknown]
  - Withdrawal syndrome [Unknown]
  - Asthenia [Unknown]
  - Tremor [Unknown]
  - Gait disturbance [Unknown]
  - Burning sensation [Unknown]
  - Dyspepsia [Unknown]
  - Night sweats [Unknown]
  - Decreased appetite [Unknown]
  - Nausea [Unknown]
  - Feeling abnormal [Unknown]
  - Visual acuity tests abnormal [Unknown]
